FAERS Safety Report 19040407 (Version 1)
Quarter: 2021Q1

REPORT INFORMATION
  Report Type: Spontaneous
  Country: US (occurrence: US)
  Receive Date: 20210322
  Receipt Date: 20210322
  Transmission Date: 20210420
  Serious: No
  Sender: FDA-Public Use
  Company Number: US-BIOHAVEN PHARMACEUTICALS-2021BHV00167

PATIENT

DRUGS (4)
  1. NURTEC ODT [Suspect]
     Active Substance: RIMEGEPANT SULFATE
     Indication: MIGRAINE
  2. CBD [Suspect]
     Active Substance: CANNABIDIOL
  3. ZOFRAN [Suspect]
     Active Substance: ONDANSETRON HYDROCHLORIDE
  4. CAFFEINE. [Suspect]
     Active Substance: CAFFEINE

REACTIONS (1)
  - Therapeutic product effect incomplete [Unknown]
